FAERS Safety Report 9713008 (Version 1)
Quarter: 2013Q4

REPORT INFORMATION
  Report Type: Spontaneous
  Country: US (occurrence: US)
  Receive Date: 20131126
  Receipt Date: 20131126
  Transmission Date: 20140711
  Serious: No
  Sender: FDA-Public Use
  Company Number: US-BRISTOL-MYERS SQUIBB COMPANY-19378744

PATIENT
  Age: 52 Year
  Sex: Male
  Weight: 120.63 kg

DRUGS (4)
  1. BYDUREON [Suspect]
     Indication: TYPE 2 DIABETES MELLITUS
     Dates: start: 2013
  2. LISINOPRIL [Concomitant]
     Route: 048
  3. LEVOTHYROXINE [Concomitant]
     Route: 048
  4. METFORMIN [Concomitant]
     Route: 048

REACTIONS (1)
  - Dysphonia [Not Recovered/Not Resolved]
